FAERS Safety Report 7439311-4 (Version None)
Quarter: 2011Q2

REPORT INFORMATION
  Report Type: 
  Country: None (occurrence: None)
  Receive Date: 20110427
  Receipt Date: 20110421
  Transmission Date: 20111010
  Serious: No
  Sender: FDA-Public Use
  Company Number: US-PFIZER INC-2011043925

PATIENT
  Sex: Female
  Weight: 54.422 kg

DRUGS (14)
  1. SERTRALINE [Concomitant]
     Indication: BIPOLAR DISORDER
     Dosage: UNK
  2. PRIMIDONE [Concomitant]
     Dosage: 50 MG, ONCE DAILY
     Dates: start: 20060101
  3. TRILEPTAL [Concomitant]
     Dosage: 150 MG, ONCE DAILY
     Dates: start: 20100101
  4. LEVOXYL [Concomitant]
     Dosage: 0.044 MG, ONCE DAILY
     Dates: start: 20030101
  5. TRAMADOL [Concomitant]
     Dosage: UNK
  6. NEURONTIN [Concomitant]
     Dosage: 100 MG, 3X/DAY
     Dates: start: 20100101
  7. FLUOXETINE [Concomitant]
     Dosage: UNK
  8. PRIMIDONE [Concomitant]
     Dosage: 50 MG, ONCE DAILY
     Dates: start: 20030101
  9. DETROL LA [Suspect]
     Indication: URINARY INCONTINENCE
  10. KLONOPIN [Concomitant]
     Dosage: 1 MG, 2X/DAY
     Dates: start: 20050101
  11. ZOLOFT [Concomitant]
     Dosage: 100 MG, ONCE DAILY
     Dates: start: 20090101
  12. DETROL LA [Suspect]
     Indication: HYPERTONIC BLADDER
     Dosage: 4 MG, 1X/DAY
     Route: 048
     Dates: start: 20110212, end: 20110225
  13. OXCARBAZEPINE [Concomitant]
     Dosage: UNK
  14. ZOCOR [Concomitant]
     Dosage: 20 MG, ONCE DAILY
     Dates: start: 20100101

REACTIONS (1)
  - DRUG INEFFECTIVE [None]
